FAERS Safety Report 15583303 (Version 3)
Quarter: 2019Q1

REPORT INFORMATION
  Report Type: Not Available
  Country: US (occurrence: US)
  Receive Date: 20181105
  Receipt Date: 20190222
  Transmission Date: 20190417
  Serious: No
  Sender: FDA-Public Use
  Company Number: US-NEUROCRINE BIOSCIENCES INC.-2018NBI03110

PATIENT
  Sex: Female

DRUGS (20)
  1. INGREZZA [Suspect]
     Active Substance: VALBENAZINE
     Indication: TARDIVE DYSKINESIA
     Route: 048
     Dates: start: 201808
  2. ALBUTEROL. [Concomitant]
     Active Substance: ALBUTEROL
  3. ALLOPURINOL. [Concomitant]
     Active Substance: ALLOPURINOL
  4. LEVOTHYROXINE. [Concomitant]
     Active Substance: LEVOTHYROXINE
  5. POTASSIUM CHLORIDE. [Concomitant]
     Active Substance: POTASSIUM CHLORIDE
  6. DICLOFENAC POTASSIUM. [Concomitant]
     Active Substance: DICLOFENAC POTASSIUM
  7. XARELTO [Concomitant]
     Active Substance: RIVAROXABAN
  8. DONEPEZIL. [Concomitant]
     Active Substance: DONEPEZIL
     Route: 048
  9. FUROSEMIDE. [Concomitant]
     Active Substance: FUROSEMIDE
     Route: 048
  10. GABAPENTIN. [Concomitant]
     Active Substance: GABAPENTIN
     Route: 048
  11. OMEPRAZOLE. [Concomitant]
     Active Substance: OMEPRAZOLE
  12. IRBESARTAN. [Concomitant]
     Active Substance: IRBESARTAN
     Route: 048
  13. LORAZEPAM. [Concomitant]
     Active Substance: LORAZEPAM
  14. METOLAZONE. [Concomitant]
     Active Substance: METOLAZONE
  15. METOPROLOL TARTRATE. [Concomitant]
     Active Substance: METOPROLOL TARTRATE
  16. VENLAFAXINE [Concomitant]
     Active Substance: VENLAFAXINE HYDROCHLORIDE
  17. LEVOCETIRIZINE [Concomitant]
     Active Substance: LEVOCETIRIZINE
     Route: 048
  18. AMITIZA [Concomitant]
     Active Substance: LUBIPROSTONE
     Route: 048
  19. BREO ELLIPTA [Concomitant]
     Active Substance: FLUTICASONE FUROATE\VILANTEROL TRIFENATATE
  20. OXYCODONE/ACETAMINOPHEN [Concomitant]
     Active Substance: ACETAMINOPHEN\OXYCODONE HYDROCHLORIDE

REACTIONS (3)
  - Drug effect decreased [None]
  - Dry mouth [Not Recovered/Not Resolved]
  - Gingival erosion [Not Recovered/Not Resolved]

NARRATIVE: CASE EVENT DATE: 2018
